FAERS Safety Report 15373286 (Version 1)
Quarter: 2018Q3

REPORT INFORMATION
  Report Type: Report from Study
  Country: JP (occurrence: JP)
  Receive Date: 20180912
  Receipt Date: 20180912
  Transmission Date: 20181010
  Serious: Yes (Other)
  Sender: FDA-Public Use
  Company Number: JP-AMGEN-JPNSP2017160513

PATIENT
  Age: 65 Year
  Sex: Female

DRUGS (43)
  1. CARFILZOMIB [Suspect]
     Active Substance: CARFILZOMIB
     Dosage: 42 MG/M2, UNK
     Route: 041
     Dates: start: 20180104, end: 20180104
  2. CARFILZOMIB [Suspect]
     Active Substance: CARFILZOMIB
     Dosage: 42 MG/M2, UNK
     Route: 041
     Dates: start: 20180222, end: 20180222
  3. DEXAMETHASONE. [Concomitant]
     Active Substance: DEXAMETHASONE
     Dosage: UNK
     Dates: start: 20180111, end: 20180112
  4. CARFILZOMIB [Suspect]
     Active Substance: CARFILZOMIB
     Dosage: 42 MG/M2, UNK
     Route: 041
     Dates: start: 20171221, end: 20171221
  5. DEXAMETHASONE. [Concomitant]
     Active Substance: DEXAMETHASONE
     Dosage: UNK
     Dates: start: 20170928, end: 20170929
  6. DEXAMETHASONE. [Concomitant]
     Active Substance: DEXAMETHASONE
     Dosage: UNK
     Dates: start: 20171005, end: 20171006
  7. DEXAMETHASONE. [Concomitant]
     Active Substance: DEXAMETHASONE
     Dosage: UNK
     Dates: start: 20171026, end: 20171027
  8. DEXAMETHASONE. [Concomitant]
     Active Substance: DEXAMETHASONE
     Dosage: UNK
     Dates: start: 20180125, end: 20180126
  9. DEXAMETHASONE. [Concomitant]
     Active Substance: DEXAMETHASONE
     Dosage: UNK
     Dates: start: 20180215, end: 20180216
  10. CARFILZOMIB [Suspect]
     Active Substance: CARFILZOMIB
     Dosage: 42 MG/M2, UNK
     Route: 041
     Dates: start: 20171228, end: 20171228
  11. DEXAMETHASONE. [Concomitant]
     Active Substance: DEXAMETHASONE
     Dosage: UNK
     Dates: start: 20171102, end: 20171103
  12. DEXAMETHASONE. [Concomitant]
     Active Substance: DEXAMETHASONE
     Dosage: UNK
     Dates: start: 20180208, end: 20180209
  13. DEXAMETHASONE. [Concomitant]
     Active Substance: DEXAMETHASONE
     Dosage: UNK
     Dates: start: 20180228, end: 20180301
  14. CARFILZOMIB [Suspect]
     Active Substance: CARFILZOMIB
     Dosage: 42 MG/M2, UNK
     Route: 041
     Dates: start: 20171102, end: 20171103
  15. CARFILZOMIB [Suspect]
     Active Substance: CARFILZOMIB
     Dosage: 42 MG/M2, UNK
     Route: 041
     Dates: start: 20171130, end: 20171201
  16. CARFILZOMIB [Suspect]
     Active Substance: CARFILZOMIB
     Dosage: 42 MG/M2, UNK
     Route: 041
     Dates: start: 20180228, end: 20180228
  17. DEXAMETHASONE. [Concomitant]
     Active Substance: DEXAMETHASONE
     Dosage: UNK
     Dates: start: 20171109, end: 20171110
  18. DEXAMETHASONE. [Concomitant]
     Active Substance: DEXAMETHASONE
     Dosage: UNK
     Dates: start: 20171221, end: 20171222
  19. DEXAMETHASONE. [Concomitant]
     Active Substance: DEXAMETHASONE
     Dosage: UNK
     Dates: start: 20180118, end: 20180119
  20. DEXAMETHASONE. [Concomitant]
     Active Substance: DEXAMETHASONE
     Dosage: UNK
     Dates: start: 20180201, end: 20180202
  21. CARFILZOMIB [Suspect]
     Active Substance: CARFILZOMIB
     Indication: PLASMA CELL MYELOMA
     Dosage: 20 MG/M2, UNK
     Route: 041
     Dates: start: 20170921, end: 20170922
  22. CARFILZOMIB [Suspect]
     Active Substance: CARFILZOMIB
     Dosage: 20 MG/M2, UNK
     Route: 041
     Dates: start: 20170928, end: 20170929
  23. CARFILZOMIB [Suspect]
     Active Substance: CARFILZOMIB
     Dosage: 42 MG/M2, UNK
     Route: 041
     Dates: start: 20171026, end: 20171027
  24. CARFILZOMIB [Suspect]
     Active Substance: CARFILZOMIB
     Dosage: 42 MG/M2, UNK
     Route: 041
     Dates: start: 20171116, end: 20171117
  25. CARFILZOMIB [Suspect]
     Active Substance: CARFILZOMIB
     Dosage: 42 MG/M2, UNK
     Route: 041
     Dates: start: 20180201, end: 20180201
  26. CARFILZOMIB [Suspect]
     Active Substance: CARFILZOMIB
     Dosage: 42 MG/M2, UNK
     Route: 041
     Dates: start: 20180215, end: 20180215
  27. DEXAMETHASONE. [Concomitant]
     Active Substance: DEXAMETHASONE
     Dosage: UNK
     Dates: start: 20170921, end: 20170922
  28. DEXAMETHASONE. [Concomitant]
     Active Substance: DEXAMETHASONE
     Dosage: UNK
     Dates: start: 20171207, end: 20171208
  29. DEXAMETHASONE. [Concomitant]
     Active Substance: DEXAMETHASONE
     Dosage: UNK
     Dates: start: 20171228, end: 20171229
  30. DEXAMETHASONE. [Concomitant]
     Active Substance: DEXAMETHASONE
     Dosage: UNK
     Dates: start: 20180104, end: 20180105
  31. VALACICLOVIR [Concomitant]
     Active Substance: VALACYCLOVIR HYDROCHLORIDE
     Dosage: UNK
     Dates: start: 20170921
  32. CARFILZOMIB [Suspect]
     Active Substance: CARFILZOMIB
     Dosage: 56 MG/M2, UNK
     Route: 041
     Dates: start: 20171005, end: 20171006
  33. CARFILZOMIB [Suspect]
     Active Substance: CARFILZOMIB
     Dosage: 42 MG/M2, UNK
     Route: 041
     Dates: start: 20180118, end: 20180118
  34. DEXAMETHASONE. [Concomitant]
     Active Substance: DEXAMETHASONE
     Dosage: UNK
     Dates: start: 20171116, end: 20171117
  35. DEXAMETHASONE. [Concomitant]
     Active Substance: DEXAMETHASONE
     Dosage: UNK
     Dates: start: 20171214, end: 20171215
  36. DEXAMETHASONE. [Concomitant]
     Active Substance: DEXAMETHASONE
     Dosage: UNK
     Dates: start: 20180307, end: 20180308
  37. DEXAMETHASONE. [Concomitant]
     Active Substance: DEXAMETHASONE
     Dosage: UNK
     Dates: start: 20171012, end: 20171013
  38. DEXAMETHASONE. [Concomitant]
     Active Substance: DEXAMETHASONE
     Dosage: UNK
     Dates: start: 20171019, end: 20171020
  39. DEXAMETHASONE. [Concomitant]
     Active Substance: DEXAMETHASONE
     Dosage: UNK
     Dates: start: 20171130, end: 20171201
  40. DEXAMETHASONE. [Concomitant]
     Active Substance: DEXAMETHASONE
     Dosage: UNK
     Dates: start: 20180222, end: 20180223
  41. CARFILZOMIB [Suspect]
     Active Substance: CARFILZOMIB
     Dosage: 42 MG/M2, UNK
     Route: 041
     Dates: start: 20171019, end: 20171020
  42. CARFILZOMIB [Suspect]
     Active Substance: CARFILZOMIB
     Dosage: 42 MG/M2, UNK
     Route: 041
     Dates: start: 20171207, end: 20171208
  43. CARFILZOMIB [Suspect]
     Active Substance: CARFILZOMIB
     Dosage: 42 MG/M2, UNK
     Route: 041
     Dates: start: 20180125, end: 20180125

REACTIONS (2)
  - Hyperamylasaemia [Recovered/Resolved]
  - Lipase increased [Recovered/Resolved]

NARRATIVE: CASE EVENT DATE: 20170925
